FAERS Safety Report 5301651-2 (Version None)
Quarter: 2007Q2

REPORT INFORMATION
  Report Type: 
  Country: None (occurrence: None)
  Receive Date: 20070419
  Receipt Date: 20070410
  Transmission Date: 20071010
  Serious: Yes (Other)
  Sender: FDA-Public Use
  Company Number: PHEH2007US05191

PATIENT
  Age: 43 Year
  Sex: Female
  Weight: 86.621 kg

DRUGS (1)
  1. PAMIDRONATE DISODIUM [Suspect]
     Indication: METASTASES TO BONE
     Dosage: 90MG QMON
     Route: 042
     Dates: start: 20050901, end: 20060401

REACTIONS (1)
  - OSTEONECROSIS [None]
